FAERS Safety Report 7753237-8 (Version None)
Quarter: 2011Q3

REPORT INFORMATION
  Report Type: 
  Country: None (occurrence: None)
  Receive Date: 20110915
  Receipt Date: 20110905
  Transmission Date: 20111222
  Serious: Yes (Other)
  Sender: FDA-Public Use
  Company Number: FI-TEVA-300482ISR

PATIENT
  Sex: Female

DRUGS (3)
  1. PACLITAXEL [Suspect]
  2. METOPROLOL TARTRATE [Concomitant]
  3. BEVACIZUMAB [Suspect]

REACTIONS (1)
  - CUTANEOUS LUPUS ERYTHEMATOSUS [None]
